FAERS Safety Report 20559014 (Version 23)
Quarter: 2024Q3

REPORT INFORMATION
  Report Type: Spontaneous
  Country: US (occurrence: US)
  Receive Date: 20220307
  Receipt Date: 20240916
  Transmission Date: 20241016
  Serious: Yes (Hospitalization, Disabling, Other)
  Sender: ORGANON
  Company Number: US-ORGANON-O2203USA000259

PATIENT
  Sex: Female
  Weight: 111.11 kg

DRUGS (39)
  1. SINGULAIR [Suspect]
     Active Substance: MONTELUKAST SODIUM
     Indication: Asthma
     Dosage: 10 MILLIGRAM
     Route: 048
     Dates: start: 2011, end: 202201
  2. SINGULAIR [Suspect]
     Active Substance: MONTELUKAST SODIUM
     Dosage: 1 TABLET, QD (ONCE DAILY IN EVENING)
     Route: 048
     Dates: start: 20130930
  3. SINGULAIR [Suspect]
     Active Substance: MONTELUKAST SODIUM
     Dosage: 1 DOSAGE FORM (10 MG)
     Route: 048
     Dates: start: 20131231, end: 20150629
  4. SINGULAIR [Suspect]
     Active Substance: MONTELUKAST SODIUM
     Dosage: TAKE 1 TABLET (10 MG TOTAL) BY MOUTH EVERY MORNING
     Route: 048
     Dates: start: 20150703, end: 20230414
  5. PROTONIX [Concomitant]
     Active Substance: PANTOPRAZOLE SODIUM
     Dosage: TAKE 1 TABLET (40 MG TOTAL) BY MOUTH DAILY. 30-60 MINUTES BEFORE BREAKFAST
     Route: 048
     Dates: start: 20150318, end: 20170114
  6. PREDNISOLONE [Concomitant]
     Active Substance: PREDNISOLONE
     Dosage: 10 MILLIGRAM, QD
     Route: 048
     Dates: end: 20150930
  7. KENALOG [Concomitant]
     Active Substance: TRIAMCINOLONE ACETONIDE
  8. NUVIGIL [Concomitant]
     Active Substance: ARMODAFINIL
     Dosage: 50 MILLIGRAM, QD
     Route: 048
     Dates: start: 20150618, end: 20151205
  9. ZOCOR [Concomitant]
     Active Substance: SIMVASTATIN
     Dosage: TAKE 1 TABLET (40 MG TOTAL) BY MOUTH NIGHTLY
     Route: 048
     Dates: start: 20150629, end: 20160719
  10. DESYREL [Concomitant]
     Active Substance: TRAZODONE HYDROCHLORIDE
     Dosage: TAKE 1 TABLET (150 MG TOTAL) BY MOUTH NIGHTLY
     Route: 048
     Dates: start: 20150703, end: 20160319
  11. ASCORBIC ACID [Concomitant]
     Active Substance: ASCORBIC ACID
     Dosage: 500 MILLIGRAM, QD
     Route: 048
     Dates: start: 20150618
  12. CELEBREX [Concomitant]
     Active Substance: CELECOXIB
  13. VITAMIN D3 [Concomitant]
     Active Substance: CHOLECALCIFEROL
     Dosage: 3000 IU INTERNATIONAL UNIT(S)
     Route: 048
  14. BENTYL [Concomitant]
     Active Substance: DICYCLOMINE HYDROCHLORIDE
     Dosage: 20 MILLIGRAM (TAKE BEFORE MEALS AND BEDTIME AS NEEDED)
     Dates: start: 20150824
  15. TRICOR [Concomitant]
     Active Substance: FENOFIBRATE
  16. ADVAIR HFA [Concomitant]
     Active Substance: FLUTICASONE PROPIONATE\SALMETEROL XINAFOATE
     Indication: Dyspnoea
     Dosage: UNK
  17. FOLIC ACID [Concomitant]
     Active Substance: FOLIC ACID
     Dosage: 500 MILLIGRAM, QD
     Route: 048
  18. NORCO [Concomitant]
     Active Substance: ACETAMINOPHEN\HYDROCODONE BITARTRATE
     Dosage: TAKE 1-2 TABLETS BY MOUTH EVERY 6 (SIX) HOURS AS NEEDED
     Route: 048
     Dates: start: 20150811
  19. IRON [Concomitant]
     Active Substance: IRON
     Dosage: 54 MILLIGRAM, QD (WITH MAGNESIUM)
     Route: 048
  20. LEVOTHROID [Concomitant]
     Active Substance: LEVOTHYROXINE SODIUM
     Dosage: UNK
     Dates: start: 20150630
  21. MAGNESIUM [Concomitant]
     Active Substance: MAGNESIUM
     Dosage: 500 MILLIGRAM, QD
     Route: 048
  22. GLUCOPHAGE [Concomitant]
     Active Substance: METFORMIN HYDROCHLORIDE
     Dosage: 500 MILLIGRAM, QD (TAKE 1 TABLET EVERY MORNING WITH BREAKFAST)
     Route: 048
     Dates: start: 20150703
  23. MILNACIPRAN HYDROCHLORIDE [Concomitant]
     Active Substance: MILNACIPRAN HYDROCHLORIDE
  24. ALBUTEROL SULFATE [Concomitant]
     Active Substance: ALBUTEROL SULFATE
     Indication: Wheezing
     Dosage: UNK, INHALE 1-2 PUFFS INTO THE LUNGS EVERY 4 (FOUR) HOURS AS NEEDED
     Dates: start: 20150220
  25. CALCIUM CITRATE\CHOLECALCIFEROL [Concomitant]
     Active Substance: CALCIUM CITRATE\CHOLECALCIFEROL
     Dosage: 2 DOSAGE FORM, QID (CREAMY BITES)
     Route: 048
     Dates: start: 20130904
  26. NIZORAL [Concomitant]
     Active Substance: KETOCONAZOLE
     Dosage: WASH AS DIRECTED, BIW FOR 4 WEEKS, THEN USE INTERMITTENTLY
     Route: 061
     Dates: start: 20171127, end: 20181121
  27. MIRENA [Concomitant]
     Active Substance: LEVONORGESTREL
     Dosage: UNK (PLACED 12-APR-2018 TO 12-APR-2018)
     Route: 015
     Dates: start: 20180413, end: 20180810
  28. VITAMINS NOS [Concomitant]
     Active Substance: VITAMINS
     Dosage: 1 TABLET, TID
     Route: 048
     Dates: start: 20130904
  29. VITAMINS NOS [Concomitant]
     Active Substance: VITAMINS
     Dosage: 1 DOSAGE FORM, QD (EVERY EVENING)
     Route: 048
  30. PROBIOTIC [BIFIDOBACTERIUM BIFIDUM;BIFIDOBACTERIUM LACTIS;BIFIDOBACTER [Concomitant]
     Indication: Gastrointestinal disorder
     Dosage: 1 CAPSULE, TID
     Route: 048
     Dates: start: 20130904
  31. SAVELLA [Concomitant]
     Active Substance: MILNACIPRAN HYDROCHLORIDE
     Dosage: TAKE ONE TABLET BY MOUTH TWO TIMES A DAY
     Route: 048
     Dates: start: 20171117
  32. TIROSINT [Concomitant]
     Active Substance: LEVOTHYROXINE SODIUM
     Indication: Hypothyroidism
     Dosage: 1 CAPSULE, QD
     Route: 048
     Dates: start: 20180330
  33. CALCIUM [Concomitant]
     Active Substance: CALCIUM
     Dosage: UNK
  34. ARMODAFINIL [Concomitant]
     Active Substance: ARMODAFINIL
     Dosage: 1 DOSAGE FORM, QD
     Route: 048
     Dates: start: 20171117, end: 20230502
  35. VITAMIN B COMPLEX [Concomitant]
     Active Substance: CYANOCOBALAMIN\DEXPANTHENOL\NIACINAMIDE\PYRIDOXINE HYDROCHLORIDE\RIBOFLAVIN 5^-PHOSPHATE SODIUM\THIA
     Dosage: 1 DOSAGE FORM, QD
     Route: 048
     Dates: end: 20230426
  36. PROVERA [Concomitant]
     Active Substance: MEDROXYPROGESTERONE ACETATE
     Dosage: 1 DOSAGE FORM, QD (ON DAYS 1-12 OF EACH MONTH)
     Route: 048
     Dates: start: 20180809, end: 20190810
  37. DRISDOL [Concomitant]
     Active Substance: ERGOCALCIFEROL
     Dosage: 1 DOSAGE FORM, QW
     Dates: start: 20160614
  38. METFORMIN HYDROCHLORIDE [Concomitant]
     Active Substance: METFORMIN HYDROCHLORIDE
     Dosage: ONE PILL PO QD,
     Route: 048
  39. ZOCOR [Concomitant]
     Active Substance: SIMVASTATIN
     Dosage: TAKE ONE TABLET DAILY
     Route: 048

REACTIONS (136)
  - Suicidal ideation [Recovered/Resolved]
  - Anxiety [Unknown]
  - Depression [Not Recovered/Not Resolved]
  - Affective disorder [Unknown]
  - Neuropsychological symptoms [Not Recovered/Not Resolved]
  - Panic disorder [Recovered/Resolved]
  - Essential tremor [Not Recovered/Not Resolved]
  - Bipolar disorder [Recovered/Resolved]
  - Major depression [Not Recovered/Not Resolved]
  - Generalised anxiety disorder [Not Recovered/Not Resolved]
  - Major depression [Unknown]
  - Narcolepsy [Unknown]
  - Systemic mastocytosis [Unknown]
  - Endocarditis [Unknown]
  - Coeliac disease [Unknown]
  - Narcolepsy [Unknown]
  - Respiratory disorder [Not Recovered/Not Resolved]
  - Diverticulitis [Recovered/Resolved]
  - Deafness neurosensory [Unknown]
  - Thyroid cancer [Not Recovered/Not Resolved]
  - Hypothyroidism [Not Recovered/Not Resolved]
  - Haematochezia [Unknown]
  - Social anxiety disorder [Not Recovered/Not Resolved]
  - Post-traumatic stress disorder [Not Recovered/Not Resolved]
  - Avoidant personality disorder [Not Recovered/Not Resolved]
  - Periodic limb movement disorder [Not Recovered/Not Resolved]
  - Sleep apnoea syndrome [Unknown]
  - Sleep disorder [Not Recovered/Not Resolved]
  - Insomnia [Not Recovered/Not Resolved]
  - Dizziness [Not Recovered/Not Resolved]
  - Breast mass [Unknown]
  - Limb discomfort [Unknown]
  - Weight increased [Unknown]
  - Obstructive sleep apnoea syndrome [Unknown]
  - Stress [Unknown]
  - Anxiety [Unknown]
  - Nervousness [Unknown]
  - Weight decreased [Unknown]
  - Dyspepsia [Unknown]
  - Hernia [Unknown]
  - Lichen sclerosus [Unknown]
  - Tooth injury [Recovered/Resolved]
  - Fall [Unknown]
  - Hypopnoea [Unknown]
  - Overweight [Not Recovered/Not Resolved]
  - Temperature intolerance [Unknown]
  - Vision blurred [Not Recovered/Not Resolved]
  - Eye pain [Not Recovered/Not Resolved]
  - Diplopia [Not Recovered/Not Resolved]
  - Tinnitus [Not Recovered/Not Resolved]
  - Amnesia [Not Recovered/Not Resolved]
  - Disturbance in attention [Not Recovered/Not Resolved]
  - Chest discomfort [Unknown]
  - Chest pain [Unknown]
  - Palpitations [Unknown]
  - Joint swelling [Unknown]
  - Dyspnoea [Unknown]
  - Abdominal pain lower [Unknown]
  - Abdominal distension [Unknown]
  - Nausea [Unknown]
  - Vomiting [Unknown]
  - Pollakiuria [Unknown]
  - Premenstrual syndrome [Unknown]
  - Rash [Unknown]
  - Dry skin [Unknown]
  - Pruritus [Not Recovered/Not Resolved]
  - Arthralgia [Unknown]
  - Muscle spasms [Unknown]
  - Social avoidant behaviour [Unknown]
  - Depressed mood [Not Recovered/Not Resolved]
  - Asthenia [Unknown]
  - Disturbance in attention [Unknown]
  - Decreased interest [Unknown]
  - Irritability [Unknown]
  - Psychomotor hyperactivity [Recovered/Resolved]
  - Hypersomnia [Unknown]
  - Diarrhoea [Recovering/Resolving]
  - Abdominal discomfort [Unknown]
  - Agitation [Unknown]
  - Brain fog [Unknown]
  - Memory impairment [Unknown]
  - Persistent depressive disorder [Unknown]
  - Anger [Unknown]
  - Emotional disorder [Unknown]
  - Disturbance in attention [Unknown]
  - Feeling of despair [Unknown]
  - Flushing [Not Recovered/Not Resolved]
  - Feeling abnormal [Unknown]
  - Fatigue [Not Recovered/Not Resolved]
  - Injury [Unknown]
  - Feeling guilty [Unknown]
  - Abulia [Unknown]
  - Sleep disorder [Unknown]
  - Appetite disorder [Unknown]
  - Libido decreased [Unknown]
  - Apathy [Unknown]
  - Catastrophic reaction [Unknown]
  - Tachyphrenia [Unknown]
  - Mania [Recovered/Resolved]
  - Mood swings [Unknown]
  - Abnormal behaviour [Unknown]
  - Phobic avoidance [Unknown]
  - Intrusive thoughts [Unknown]
  - Marital problem [Unknown]
  - Binge eating [Unknown]
  - Hyperlipidaemia [Unknown]
  - Obesity [Unknown]
  - Endometrial hyperplasia [Unknown]
  - Amenorrhoea [Unknown]
  - Heavy menstrual bleeding [Unknown]
  - Menstruation irregular [Unknown]
  - Coital bleeding [Unknown]
  - Abdominal pain [Not Recovered/Not Resolved]
  - Beta haemolytic streptococcal infection [Unknown]
  - Pain [Unknown]
  - Pyrexia [Unknown]
  - Somnolence [Unknown]
  - Fibromyalgia [Unknown]
  - Diverticulum intestinal [Unknown]
  - Gastrooesophageal reflux disease [Unknown]
  - Hiatus hernia [Unknown]
  - Impaired fasting glucose [Unknown]
  - Vitamin D deficiency [Unknown]
  - Ligament sprain [Unknown]
  - Adjustment disorder [Unknown]
  - Swelling [Unknown]
  - Wound [Unknown]
  - Scar [Unknown]
  - Scar pain [Unknown]
  - Hyperaesthesia teeth [Unknown]
  - Headache [Unknown]
  - Neck pain [Unknown]
  - Aphasia [Unknown]
  - Rhinorrhoea [Unknown]
  - Nasal congestion [Unknown]
  - Urinary tract disorder [Unknown]

NARRATIVE: CASE EVENT DATE: 20110101
